FAERS Safety Report 9752221 (Version 1)
Quarter: 2013Q4

REPORT INFORMATION
  Report Type: Spontaneous
  Country: CN (occurrence: None)
  Receive Date: 20131211
  Receipt Date: 20131211
  Transmission Date: 20140711
  Serious: Yes (Hospitalization, Other)
  Sender: FDA-Public Use
  Company Number: CN-ALKEM-000427

PATIENT
  Age: 18 Year
  Sex: Female
  Weight: 46 kg

DRUGS (2)
  1. MYCOPHENOLATE MOFETIL [Suspect]
     Indication: STEM CELL TRANSPLANT
     Dosage: 1.00-G-1.00 TIMES PER-12.0HOURS, ORAL
     Route: 048
  2. METHYLPREDNISOLONE (METHYLPREDNISOLONE) [Suspect]
     Indication: STEM CELL TRANSPLANT
     Dosage: 8.00-G-1.00 TIMES PER-12.0HOURS
     Route: 048

REACTIONS (10)
  - Leukoencephalopathy [None]
  - Lung infection [None]
  - Drug interaction [None]
  - Fungal infection [None]
  - Epilepsy [None]
  - Blood urea increased [None]
  - Blood uric acid increased [None]
  - Blood lactate dehydrogenase increased [None]
  - Alpha hydroxybutyrate dehydrogenase increased [None]
  - Myoglobin blood increased [None]
